FAERS Safety Report 13158195 (Version 2)
Quarter: 2017Q4

REPORT INFORMATION
  Report Type: Spontaneous
  Country: US (occurrence: US)
  Receive Date: 20170127
  Receipt Date: 20171229
  Transmission Date: 20180320
  Serious: Yes (Other)
  Sender: FDA-Public Use
  Company Number: US-LUPIN PHARMACEUTICALS INC.-2017-00359

PATIENT
  Age: 49 Year
  Sex: Female
  Weight: 46.5 kg

DRUGS (17)
  1. VITAMIN B12 [Concomitant]
     Active Substance: CYANOCOBALAMIN
     Indication: MELAS SYNDROME
     Dosage: 1000 MG,QD,
     Route: 065
  2. VITAMIN E [Concomitant]
     Active Substance: .ALPHA.-TOCOPHEROL
     Indication: MELAS SYNDROME
     Dosage: 400 MG,BID,
     Route: 065
  3. LEVETIRACETAM. [Suspect]
     Active Substance: LEVETIRACETAM
     Indication: MELAS SYNDROME
     Dosage: 2000 MG,BID,
     Route: 065
  4. CLONAZAPAN [Concomitant]
     Indication: EPILEPSY
     Dosage: 1 MG,QD,
     Route: 065
  5. UBIQUINONE [Concomitant]
     Active Substance: UBIDECARENONE
     Indication: MELAS SYNDROME
     Dosage: 800 MG,BID,
     Route: 065
  6. LEVETIRACETAM. [Suspect]
     Active Substance: LEVETIRACETAM
     Indication: EPILEPSY
     Dosage: TAPERED DOSE
     Route: 065
  7. PHENYTOIN. [Suspect]
     Active Substance: PHENYTOIN
     Indication: EPILEPSY
     Dosage: 100 MG,TID,
     Route: 065
  8. PHENYTOIN. [Suspect]
     Active Substance: PHENYTOIN
     Dosage: 50 MG,TID,
     Route: 065
  9. L-ARGININE [Concomitant]
     Active Substance: ARGININE
     Indication: MELAS SYNDROME
     Dosage: 5000 MG,BID,
     Route: 065
  10. LAMOTRIGINE. [Suspect]
     Active Substance: LAMOTRIGINE
     Indication: EPILEPSY
     Dosage: TAPERED DOSE
     Route: 065
  11. LEVOTHYROXINE. [Concomitant]
     Active Substance: LEVOTHYROXINE
     Indication: HYPOTHYROIDISM
     Dosage: 50 MG,QD,
     Route: 065
  12. CALCIUM [Concomitant]
     Active Substance: CALCIUM
     Indication: MELAS SYNDROME
     Dosage: 1200 MG,QD,
     Route: 065
  13. VITAMIN D [Concomitant]
     Active Substance: CHOLECALCIFEROL
     Indication: MELAS SYNDROME
     Dosage: UNK UNK,UNK,UNKNOWN
     Route: 065
  14. PHENYTOIN. [Suspect]
     Active Substance: PHENYTOIN
     Indication: MELAS SYNDROME
     Dosage: 200 MG,TID,
     Route: 065
  15. LAMOTRIGINE. [Suspect]
     Active Substance: LAMOTRIGINE
     Indication: MELAS SYNDROME
     Dosage: 250 MG,BID,
     Route: 065
  16. GLUCOSE [Concomitant]
     Active Substance: DEXTROSE
     Indication: MELAS SYNDROME
     Dosage: UNK UNK,UNK,UNKNOWN
     Route: 042
  17. VITAMIN C [Concomitant]
     Active Substance: ASCORBIC ACID
     Indication: MELAS SYNDROME
     Dosage: 1000 MG,BID,
     Route: 065

REACTIONS (2)
  - Sedation complication [Recovering/Resolving]
  - Confusional state [Recovering/Resolving]
